FAERS Safety Report 10175994 (Version 1)
Quarter: 2014Q2

REPORT INFORMATION
  Report Type: Spontaneous
  Country: US (occurrence: US)
  Receive Date: 20140516
  Receipt Date: 20140516
  Transmission Date: 20141212
  Serious: Yes (Hospitalization)
  Sender: FDA-Public Use
  Company Number: US-BAYER-2014-072760

PATIENT
  Age: 34 Year
  Sex: Female

DRUGS (5)
  1. YASMIN [Suspect]
     Indication: MENSTRUATION IRREGULAR
     Dosage: UNK
     Dates: start: 20060620, end: 20070101
  2. YASMIN [Suspect]
     Indication: HORMONE THERAPY
  3. YAZ [Suspect]
  4. DOCUSATE SODIUM [Concomitant]
     Indication: CONSTIPATION
  5. NORCO [Concomitant]
     Indication: PAIN

REACTIONS (3)
  - Pulmonary embolism [None]
  - Pleural effusion [None]
  - Chest pain [None]
